APPROVED DRUG PRODUCT: NITROGLYCERIN IN DEXTROSE 5%
Active Ingredient: NITROGLYCERIN
Strength: 20MG/100ML
Dosage Form/Route: INJECTABLE;INJECTION
Application: A071847 | Product #001
Applicant: HOSPIRA INC
Approved: Aug 31, 1990 | RLD: No | RS: No | Type: DISCN